FAERS Safety Report 4664822-4 (Version None)
Quarter: 2005Q2

REPORT INFORMATION
  Report Type: 
  Country: None (occurrence: None)
  Receive Date: 20050516
  Receipt Date: 20050510
  Transmission Date: 20051028
  Serious: Yes (Death, Hospitalization)
  Sender: FDA-Public Use
  Company Number: 2004229592IT

PATIENT
  Age: 65 Year
  Sex: Male

DRUGS (5)
  1. CAMPTOSAR [Suspect]
     Indication: COLORECTAL CANCER METASTATIC
     Dosage: 600 MG, INTRAVENOUS
     Route: 042
     Dates: start: 20040730, end: 20040730
  2. CETUXIMAB           (CETUXIMAB) [Suspect]
     Indication: COLORECTAL CANCER METASTATIC
     Dosage: 690 INTRAVENOUS; 435 MG INTRAVENOUS
     Route: 042
     Dates: start: 20040730, end: 20040730
  3. CETUXIMAB           (CETUXIMAB) [Suspect]
     Indication: COLORECTAL CANCER METASTATIC
     Dosage: 690 INTRAVENOUS; 435 MG INTRAVENOUS
     Route: 042
     Dates: start: 20040806, end: 20040806
  4. ONDANSETRON HYDROCHLORIDE [Concomitant]
  5. DEXAMETHASONE [Concomitant]

REACTIONS (8)
  - ASCITES [None]
  - BONE MARROW TOXICITY [None]
  - DEHYDRATION [None]
  - FEBRILE NEUTROPENIA [None]
  - HEPATIC FAILURE [None]
  - LEUKOPENIA [None]
  - METASTASES TO LIVER [None]
  - SEPTIC SHOCK [None]
